FAERS Safety Report 6631109-X (Version None)
Quarter: 2010Q1

REPORT INFORMATION
  Report Type: 
  Country: None (occurrence: None)
  Receive Date: 20100309
  Receipt Date: 20100304
  Transmission Date: 20100710
  Serious: Yes (Death)
  Sender: FDA-Public Use
  Company Number: 2010SP013901

PATIENT

DRUGS (3)
  1. TEMOZOLOMIDE [Suspect]
     Indication: SARCOMA METASTATIC
     Dosage: 100 MG/M2; QD;
  2. IRINOTECAN HCL [Suspect]
     Indication: SARCOMA METASTATIC
     Dosage: 50 MG/M2; QD; PO
     Route: 048
  3. VINCRISTINE [Suspect]
     Indication: SARCOMA METASTATIC
     Dosage: 1.5 MG/M2; ; IV
     Route: 042

REACTIONS (1)
  - HEPATIC FAILURE [None]
